FAERS Safety Report 20694256 (Version 3)
Quarter: 2022Q2

REPORT INFORMATION
  Report Type: Spontaneous
  Country: PL (occurrence: PL)
  Receive Date: 20220411
  Receipt Date: 20220525
  Transmission Date: 20220720
  Serious: Yes (Hospitalization, Other)
  Sender: FDA-Public Use
  Company Number: PL-GLAXOSMITHKLINE-PLCH2022EME009716

PATIENT
  Age: 70 Year
  Sex: Male

DRUGS (13)
  1. DULOXETINE [Interacting]
     Active Substance: DULOXETINE
     Indication: Back pain
     Dosage: 1 DOSAGE FORM, QD (TABLET)
     Route: 065
  2. DICLOFENAC [Interacting]
     Active Substance: DICLOFENAC
     Indication: Back pain
     Dosage: UNK (IN THE FORM OF TWO DIFFERENT PREPARATIONS)
     Route: 065
  3. CELECOXIB [Interacting]
     Active Substance: CELECOXIB
     Indication: Back pain
     Dosage: UNK (IN THE FORM OF TWO DIFFERENT PREPARATIONS)
     Route: 065
  4. NIMESULIDE [Interacting]
     Active Substance: NIMESULIDE
     Indication: Back pain
     Dosage: UNK (IN THE FORM OF TWO DIFFERENT PREPARATIONS)
     Route: 065
  5. INDAPAMIDE [Interacting]
     Active Substance: INDAPAMIDE
     Indication: Diuretic therapy
     Dosage: 1 DOSAGE FORM, QD
     Route: 065
  6. KETOPROFEN [Interacting]
     Active Substance: KETOPROFEN
     Indication: Back pain
     Dosage: UNK (IN THE FORM OF TWO DIFFERENT PREPARATIONS)
     Route: 065
  7. ASPIRIN [Interacting]
     Active Substance: ASPIRIN
     Indication: Back pain
     Dosage: 1 DOSAGE FORM, QD
     Route: 065
  8. GABAPENTIN [Concomitant]
     Active Substance: GABAPENTIN
     Indication: Product used for unknown indication
     Dosage: 1 DOSAGE FORM, BID
     Route: 065
  9. NEBIVOLOL CRISTERS [Concomitant]
     Indication: Product used for unknown indication
     Dosage: 1 DOSAGE FORM, QD
     Route: 065
  10. ATORVASTATIN [Concomitant]
     Active Substance: ATORVASTATIN
     Indication: Product used for unknown indication
     Dosage: 1 DOSAGE FORM, QD
     Route: 065
  11. METFORMIN [Concomitant]
     Active Substance: METFORMIN HYDROCHLORIDE
     Indication: Type 2 diabetes mellitus
     Dosage: 1 DOSAGE FORM (AT MEALS)
     Route: 065
  12. PANTOPRAZOLE [Concomitant]
     Active Substance: PANTOPRAZOLE
     Indication: Product used for unknown indication
     Dosage: 1 DOSAGE FORM, QD
     Route: 065
  13. VALSARTAN [Concomitant]
     Active Substance: VALSARTAN
     Indication: Product used for unknown indication
     Dosage: 1 DOSAGE FORM, QD
     Route: 065

REACTIONS (3)
  - Urinary retention [Recovered/Resolved]
  - Hyponatraemia [Recovered/Resolved]
  - Drug interaction [Unknown]
